FAERS Safety Report 5147384-7 (Version None)
Quarter: 2006Q4

REPORT INFORMATION
  Report Type: 
  Country: None (occurrence: None)
  Receive Date: 20061106
  Receipt Date: 20061024
  Transmission Date: 20070319
  Serious: Yes (Hospitalization)
  Sender: FDA-Public Use
  Company Number: 231264

PATIENT
  Age: 78 Year
  Sex: Female

DRUGS (3)
  1. NUTROPIN [Suspect]
     Indication: GROWTH HORMONE DEFICIENCY
     Dosage: 0.3 MG, QHS, SUBCUTANEOUS
     Route: 058
     Dates: start: 20060728
  2. LASIX [Concomitant]
  3. INDERAL [Concomitant]

REACTIONS (5)
  - BLOOD PRESSURE ORTHOSTATIC ABNORMAL [None]
  - CONDITION AGGRAVATED [None]
  - DIZZINESS [None]
  - PARAESTHESIA [None]
  - TINNITUS [None]
